FAERS Safety Report 4583852-4 (Version None)
Quarter: 2005Q1

REPORT INFORMATION
  Report Type: 
  Country: None (occurrence: None)
  Receive Date: 20050125
  Receipt Date: 20041022
  Transmission Date: 20050727
  Serious: No
  Sender: FDA-Public Use
  Company Number: USA041082059

PATIENT
  Age: 70 Year
  Sex: Female

DRUGS (1)
  1. FORTEO [Suspect]
     Dates: start: 20041020

REACTIONS (3)
  - BALANCE DISORDER [None]
  - DIZZINESS [None]
  - FEELING ABNORMAL [None]
